FAERS Safety Report 10035191 (Version 4)
Quarter: 2015Q2

REPORT INFORMATION
  Report Type: Spontaneous
  Country: US (occurrence: US)
  Receive Date: 20140325
  Receipt Date: 20150508
  Transmission Date: 20150821
  Serious: Yes (Hospitalization)
  Sender: FDA-Public Use
  Company Number: US-BAYER-2014-045123

PATIENT
  Age: 33 Year
  Sex: Female
  Weight: 75 kg

DRUGS (3)
  1. FERROUS SULFATE [Concomitant]
     Active Substance: FERROUS SULFATE\FERROUS SULFATE, DRIED
  2. MIRENA [Suspect]
     Active Substance: LEVONORGESTREL
     Indication: MENORRHAGIA
     Dosage: 20 MCG/24HR, CONT
     Route: 015
     Dates: start: 20100110, end: 20100425
  3. PREMARIN [Concomitant]
     Active Substance: ESTROGENS, CONJUGATED
     Dosage: UNK
     Dates: end: 20100426

REACTIONS (20)
  - Uterine disorder [None]
  - Psychogenic pain disorder [None]
  - Uterine haemorrhage [None]
  - Pain [None]
  - Device issue [None]
  - Dyspnoea [None]
  - Malaise [None]
  - Device expulsion [None]
  - Gastrooesophageal reflux disease [Not Recovered/Not Resolved]
  - Emotional distress [None]
  - Hypersensitivity [None]
  - Anxiety [None]
  - Medical device discomfort [None]
  - Respiratory disorder [None]
  - Injury [None]
  - Asthenia [None]
  - Device dislocation [None]
  - Anhedonia [None]
  - Depression [None]
  - Activities of daily living impaired [None]

NARRATIVE: CASE EVENT DATE: 201003
